FAERS Safety Report 7044995-9 (Version None)
Quarter: 2010Q4

REPORT INFORMATION
  Report Type: 
  Country: None (occurrence: None)
  Receive Date: 20101014
  Receipt Date: 20101005
  Transmission Date: 20110411
  Serious: No
  Sender: FDA-Public Use
  Company Number: US-JNJFOC-20101001940

PATIENT
  Sex: Female
  Weight: 68.95 kg

DRUGS (2)
  1. SANDOZ FENTANYL TRANSDERMAL SYSTEM [Suspect]
     Indication: OSTEONECROSIS
     Dosage: NDC NUMBER: 0781-7243-55
     Route: 062
  2. 5 UNSPECIFIED MEDICATIONS [Concomitant]
     Route: 065

REACTIONS (2)
  - DRUG ADMINISTERED AT INAPPROPRIATE SITE [None]
  - PRODUCT ADHESION ISSUE [None]
